FAERS Safety Report 13683131 (Version 4)
Quarter: 2020Q2

REPORT INFORMATION
  Report Type: Spontaneous
  Country: US (occurrence: US)
  Receive Date: 20170623
  Receipt Date: 20200522
  Transmission Date: 20200713
  Serious: Yes (Hospitalization, Other)
  Sender: FDA-Public Use
  Company Number: US-LUNDBECK-DKLU2033004

PATIENT
  Age: 73 Year
  Sex: Female
  Weight: 63 kg

DRUGS (13)
  1. NORTHERA [Suspect]
     Active Substance: DROXIDOPA
     Dosage: INCREASED SOMETIME AFTER THE HOSPITAL ADMISSION
     Route: 048
     Dates: start: 201706
  2. NORTHERA [Suspect]
     Active Substance: DROXIDOPA
     Route: 048
     Dates: start: 201608
  3. NORTHERA [Suspect]
     Active Substance: DROXIDOPA
     Dosage: INCREASED SOMETIME AFTER THE HOSPITAL ADMISSION
     Route: 048
     Dates: start: 201706
  4. NORTHERA [Suspect]
     Active Substance: DROXIDOPA
     Route: 048
     Dates: start: 20170905
  5. NORTHERA [Suspect]
     Active Substance: DROXIDOPA
     Route: 048
     Dates: start: 20181129
  6. RASAGILINE. [Concomitant]
     Active Substance: RASAGILINE
     Indication: PARKINSON^S DISEASE
     Route: 065
  7. NORTHERA [Suspect]
     Active Substance: DROXIDOPA
     Dosage: INCREASED SOMETIME AFTER THE HOSPITAL ADMISSION
     Route: 048
     Dates: start: 201706
  8. ASPIRIN. [Concomitant]
     Active Substance: ASPIRIN
     Indication: PROPHYLAXIS
     Route: 048
  9. RYTARY [Concomitant]
     Active Substance: CARBIDOPA\LEVODOPA
     Indication: PARKINSON^S DISEASE
     Route: 065
  10. NORTHERA [Suspect]
     Active Substance: DROXIDOPA
     Indication: ORTHOSTATIC HYPOTENSION
     Dosage: TITRATION COMPLETE
     Route: 048
     Dates: start: 201704, end: 201706
  11. PRAVASTATIN. [Concomitant]
     Active Substance: PRAVASTATIN
     Indication: HYPERCHOLESTEROLAEMIA
     Route: 048
  12. NORTHERA [Suspect]
     Active Substance: DROXIDOPA
     Indication: PARKINSON^S DISEASE
     Dosage: SCHEDULE C/ COMPLETED
     Route: 048
     Dates: start: 20170309
  13. FLUDROCORTISONE [Concomitant]
     Active Substance: FLUDROCORTISONE
     Indication: ORTHOSTATIC HYPOTENSION
     Route: 048

REACTIONS (12)
  - Malaise [Unknown]
  - Dyspnoea [Unknown]
  - Pain in extremity [Unknown]
  - Heart rate increased [Unknown]
  - Tremor [Unknown]
  - Vision blurred [Recovering/Resolving]
  - Palpitations [Recovering/Resolving]
  - Heart rate irregular [Unknown]
  - Myocardial infarction [Unknown]
  - Hypertension [Recovered/Resolved]
  - Asthenia [Unknown]
  - Muscle spasms [Recovering/Resolving]

NARRATIVE: CASE EVENT DATE: 20170615
